FAERS Safety Report 4788658-9 (Version None)
Quarter: 2005Q4

REPORT INFORMATION
  Report Type: 
  Country: None (occurrence: None)
  Receive Date: 20051005
  Receipt Date: 20050930
  Transmission Date: 20060501
  Serious: Yes (Hospitalization)
  Sender: FDA-Public Use
  Company Number: FR-GLAXOSMITHKLINE-B0396017A

PATIENT
  Age: 43 Year
  Sex: Male

DRUGS (1)
  1. CEFUROXIME AXETIL [Suspect]
     Indication: EAR INFECTION
     Route: 048
     Dates: start: 20050901, end: 20050901

REACTIONS (6)
  - ARTHRALGIA [None]
  - ERYTHEMA [None]
  - INTESTINAL MUCOSAL HYPERTROPHY [None]
  - OEDEMA PERIPHERAL [None]
  - PURPURA [None]
  - PYREXIA [None]
